FAERS Safety Report 6060130-8 (Version None)
Quarter: 2009Q1

REPORT INFORMATION
  Report Type: 
  Country: None (occurrence: None)
  Receive Date: 20090128
  Receipt Date: 20090112
  Transmission Date: 20090719
  Serious: Yes (Hospitalization)
  Sender: FDA-Public Use
  Company Number: PAR_02729_2009

PATIENT
  Age: 56 Year
  Sex: Female
  Weight: 90 kg

DRUGS (4)
  1. IBUPROFEN (IBUPROFEN) 600 MG [Suspect]
     Indication: OSTEOPOROSIS
     Dosage: (600 MG QD, WITH 600 MG GIVEN ADDITIONALLY ONCE PER WEEK ORAL)
     Route: 048
     Dates: start: 20060501, end: 20080812
  2. FOSAMAX [Suspect]
     Indication: OSTEOPOROSIS
     Dosage: 70 MG 1X/MONTH ORAL
     Route: 048
     Dates: start: 20070801, end: 20080801
  3. BELOC ZOK [Concomitant]
  4. MICARDIS [Concomitant]

REACTIONS (4)
  - BLOOD ALKALINE PHOSPHATASE INCREASED [None]
  - GAMMA-GLUTAMYLTRANSFERASE INCREASED [None]
  - GASTRITIS [None]
  - HAEMATOCRIT ABNORMAL [None]
